FAERS Safety Report 26014645 (Version 1)
Quarter: 2025Q4

REPORT INFORMATION
  Report Type: Spontaneous
  Country: US (occurrence: US)
  Receive Date: 20251108
  Receipt Date: 20251108
  Transmission Date: 20260117
  Serious: No
  Sender: SANOFI AVENTIS
  Company Number: US-SA-2025SA329059

PATIENT
  Age: 68 Year
  Sex: Female
  Weight: 77.27 kg

DRUGS (12)
  1. DUPIXENT [Suspect]
     Active Substance: DUPILUMAB
     Indication: Dermatitis atopic
     Dosage: 300 MG, QOW
     Route: 058
  2. ADBRY [Concomitant]
     Active Substance: TRALOKINUMAB-LDRM
  3. MELOXICAM [Concomitant]
     Active Substance: MELOXICAM
  4. BOTOX [Concomitant]
     Active Substance: ONABOTULINUMTOXINA
  5. CALCIUM [Concomitant]
     Active Substance: CALCIUM
  6. MAGNESIUM [Concomitant]
     Active Substance: MAGNESIUM
  7. PROGESTERONE [Concomitant]
     Active Substance: PROGESTERONE
  8. LIOTHYRONINE SODIUM [Concomitant]
     Active Substance: LIOTHYRONINE SODIUM
  9. ARMOUR THYROID [Concomitant]
     Active Substance: THYROID, PORCINE
  10. ATORVASTATIN CALCIUM [Concomitant]
     Active Substance: ATORVASTATIN CALCIUM
  11. VITAMINS [Concomitant]
     Active Substance: VITAMINS
  12. PRASTERONE [Concomitant]
     Active Substance: PRASTERONE

REACTIONS (4)
  - Nightmare [Unknown]
  - Sleep disorder due to a general medical condition [Unknown]
  - Weight increased [Unknown]
  - Skin hypertrophy [Unknown]
